FAERS Safety Report 4724988-4 (Version None)
Quarter: 2005Q3

REPORT INFORMATION
  Report Type: 
  Country: None (occurrence: None)
  Receive Date: 20050722
  Receipt Date: 20050722
  Transmission Date: 20060218
  Serious: Yes (Hospitalization)
  Sender: FDA-Public Use
  Company Number: None

PATIENT
  Age: 36 Year
  Sex: Female

DRUGS (1)
  1. ZYRTEC-D 12 HOUR [Suspect]
     Indication: SINUSITIS
     Dosage: ORAL
     Route: 048

REACTIONS (4)
  - CONFUSIONAL STATE [None]
  - DIZZINESS [None]
  - PALPITATIONS [None]
  - VENTRICULAR EXTRASYSTOLES [None]
